FAERS Safety Report 20100065 (Version 2)
Quarter: 2022Q2

REPORT INFORMATION
  Report Type: Report from Study
  Country: JP (occurrence: None)
  Receive Date: 20211123
  Receipt Date: 20220520
  Transmission Date: 20220720
  Serious: Yes (Hospitalization)
  Sender: FDA-Public Use
  Company Number: JP-ROCHE-1853531

PATIENT
  Age: 51 Year
  Sex: Female

DRUGS (3)
  1. OLAPARIB [Suspect]
     Active Substance: OLAPARIB
     Indication: Malignant peritoneal neoplasm
     Dosage: DATE OF MOST RECENT DOSE PRIOR TO SAE :09/NOV/2016?DRUG TEMPORARILY INTERRUPTED ON 09/NOV/2016.
     Route: 048
     Dates: start: 20160831, end: 20161130
  2. BEVACIZUMAB [Suspect]
     Active Substance: BEVACIZUMAB
     Indication: Malignant peritoneal neoplasm
     Route: 065
     Dates: start: 20160907, end: 20161130
  3. CANDESARTAN CILEXETIL [Concomitant]
     Active Substance: CANDESARTAN CILEXETIL
     Route: 048

REACTIONS (2)
  - Prinzmetal angina [Recovered/Resolved]
  - Invasive ductal breast carcinoma [Recovered/Resolved]

NARRATIVE: CASE EVENT DATE: 20161109
